FAERS Safety Report 6047370-9 (Version None)
Quarter: 2009Q1

REPORT INFORMATION
  Report Type: 
  Country: None (occurrence: None)
  Receive Date: 20090122
  Receipt Date: 20090113
  Transmission Date: 20090719
  Serious: Yes (Death)
  Sender: FDA-Public Use
  Company Number: DE-GENENTECH-266814

PATIENT
  Sex: Male

DRUGS (4)
  1. RITUXIMAB [Suspect]
     Indication: CHRONIC LYMPHOCYTIC LEUKAEMIA
     Dosage: 375 MG/M2, UNK
     Route: 042
     Dates: start: 20080715
  2. BENDAMUSTINE [Suspect]
     Indication: CHRONIC LYMPHOCYTIC LEUKAEMIA REFRACTORY
     Dosage: 90 MG/M2, UNK
     Route: 042
     Dates: start: 20080715
  3. NOREPINEPHRIN-HCL [Suspect]
  4. MEDICATION (UNK INGREDIENT) [Suspect]

REACTIONS (1)
  - SEPTIC SHOCK [None]
